FAERS Safety Report 24011673 (Version 1)
Quarter: 2024Q2

REPORT INFORMATION
  Report Type: Spontaneous
  Country: US (occurrence: None)
  Receive Date: 20240625
  Receipt Date: 20240625
  Transmission Date: 20240716
  Serious: Yes (Hospitalization)
  Sender: FDA-Public Use
  Company Number: None

PATIENT
  Age: 74 Year
  Sex: Male
  Weight: 84 kg

DRUGS (14)
  1. AZACITIDINE [Suspect]
     Active Substance: AZACITIDINE
     Indication: Acute myeloid leukaemia
     Dosage: OTHER FREQUENCY : DAY 1-7 PER CYCLE;?
     Route: 058
     Dates: start: 20231209
  2. VENETOCLAX [Suspect]
     Active Substance: VENETOCLAX
     Indication: Acute myeloid leukaemia
     Dosage: FREQUENCY : DAILY;?
     Route: 048
     Dates: start: 20231209
  3. ATORVASTATIN [Concomitant]
  4. Acyclovir [Concomitant]
  5. Azelastine Nasal Spray [Concomitant]
  6. CRESEMBA [Concomitant]
  7. ERGOCALCIFEROL [Concomitant]
  8. ESCITALOPRAM [Concomitant]
  9. ezetimbe [Concomitant]
  10. fluticasone Nasal Spray [Concomitant]
  11. GABAPENTIN [Concomitant]
  12. PANTOPRAZOLE [Concomitant]
  13. QUETIAPINE [Concomitant]
  14. TAMSULOSIN [Concomitant]

REACTIONS (4)
  - Cholecystitis [None]
  - Cholelithiasis [None]
  - Pancreatic enzymes increased [None]
  - Therapy interrupted [None]

NARRATIVE: CASE EVENT DATE: 20240318
